FAERS Safety Report 10292443 (Version 1)
Quarter: 2014Q3

REPORT INFORMATION
  Report Type: Spontaneous
  Country: CA (occurrence: CA)
  Receive Date: 20140710
  Receipt Date: 20140710
  Transmission Date: 20150326
  Serious: Yes (Disabling)
  Sender: FDA-Public Use
  Company Number: CA-009507513-1407CAN004414

PATIENT

DRUGS (1)
  1. COPPERTONE CONTINUOUS SPRAY GENERAL PROTECTION SPF-60 [Suspect]
     Active Substance: AVOBENZONE\HOMOSALATE\OCTISALATE\OCTOCRYLENE\OXYBENZONE
     Route: 065

REACTIONS (1)
  - Limb injury [Unknown]
